FAERS Safety Report 5944102-7 (Version None)
Quarter: 2008Q4

REPORT INFORMATION
  Report Type: 
  Country: None (occurrence: None)
  Receive Date: 20081021
  Receipt Date: 20080402
  Transmission Date: 20090506
  Serious: Yes (Other)
  Sender: FDA-Public Use
  Company Number: US-WYE-H03429408

PATIENT
  Age: 62 Year
  Sex: Female
  Weight: 68.1 kg

DRUGS (4)
  1. PREMARIN [Suspect]
     Indication: HOT FLUSH
     Dosage: 0.9MG ONCE A DAY BUT SOMETIMES SHE WOULD ONLY TAKE FOR THE FIRST SEVEN DAYS OF THE MONTH, ORAL
     Route: 048
     Dates: start: 19940101, end: 20070101
  2. ACIPHEX [Concomitant]
  3. CLONAZEPAM [Concomitant]
  4. CLINDAMYCIN HCL [Concomitant]

REACTIONS (1)
  - ATRIAL FIBRILLATION [None]
